FAERS Safety Report 12982150 (Version 3)
Quarter: 2017Q1

REPORT INFORMATION
  Report Type: Spontaneous
  Country: US (occurrence: US)
  Receive Date: 20161129
  Receipt Date: 20170113
  Transmission Date: 20170428
  Serious: No
  Sender: FDA-Public Use
  Company Number: US-PFIZER INC-2016543938

PATIENT
  Age: 75 Year
  Sex: Female
  Weight: 107.5 kg

DRUGS (25)
  1. VITAMIN B COMPLEX [Concomitant]
     Active Substance: CYANOCOBALAMIN\DEXPANTHENOL\NIACINAMIDE\PYRIDOXINE HYDROCHLORIDE\RIBOFLAVIN 5^-PHOSPHATE SODIUM\THIAMINE HYDROCHLORIDE\VITAMIN B COMPLEX
     Dosage: UNK UNK, 1X/DAY
     Route: 048
  2. BIOTIN [Concomitant]
     Active Substance: BIOTIN
     Dosage: 10 MG, 1X/DAY
     Route: 048
  3. DONEPEZIL HYDROCHLORIDE. [Concomitant]
     Active Substance: DONEPEZIL HYDROCHLORIDE
     Indication: AMNESIA
  4. OXYBUTYNIN CHLORIDE. [Concomitant]
     Active Substance: OXYBUTYNIN CHLORIDE
     Indication: MIXED INCONTINENCE
     Dosage: 5 MG, 1X/DAY
     Route: 048
  5. REMICADE [Concomitant]
     Active Substance: INFLIXIMAB
     Indication: PSORIATIC ARTHROPATHY
  6. DONEPEZIL HYDROCHLORIDE. [Concomitant]
     Active Substance: DONEPEZIL HYDROCHLORIDE
     Indication: COGNITIVE DISORDER
     Dosage: 5 MG, 1X/DAY (AT BEDTIME)
     Route: 048
  7. PANTOPRAZOLE SODIUM. [Concomitant]
     Active Substance: PANTOPRAZOLE SODIUM
     Dosage: 40 MG, 1X/DAY
     Route: 048
  8. LYRICA [Suspect]
     Active Substance: PREGABALIN
     Indication: FIBROMYALGIA
     Dosage: 75 MG, 3X/DAY
  9. ATORVASTATIN CALCIUM. [Concomitant]
     Active Substance: ATORVASTATIN CALCIUM
     Indication: HYPERLIPIDAEMIA
     Dosage: 10 MG, 1X/DAY
     Route: 048
  10. TYLENOL [Concomitant]
     Active Substance: ACETAMINOPHEN
     Dosage: 500 MG, AS NEEDED
     Route: 048
  11. LOSARTAN POTASSIUM. [Concomitant]
     Active Substance: LOSARTAN POTASSIUM
     Indication: CHRONIC KIDNEY DISEASE
     Dosage: 50 MG, 1X/DAY
     Route: 048
  12. CLARITIN [Concomitant]
     Active Substance: LORATADINE
     Dosage: 10 MG, AS NEEDED (ONCE A DAY)
     Route: 048
  13. LYRICA [Suspect]
     Active Substance: PREGABALIN
     Dosage: 75 MG, 1X/DAY
     Route: 048
  14. REMICADE [Concomitant]
     Active Substance: INFLIXIMAB
     Indication: ARTHRITIS
     Dosage: UNK, 700 AS DIRECTED EVERY 6 WEEKS
     Route: 042
  15. VITAMIN D [Concomitant]
     Active Substance: CHOLECALCIFEROL
     Dosage: 4000 IU, DAILY
     Route: 048
  16. ALPHA LIPOIC ACID [Concomitant]
     Active Substance: .ALPHA.-LIPOIC ACID
     Dosage: 200 MG, UNK (AS DIRECTED)
     Route: 048
  17. LEVEMIR [Concomitant]
     Active Substance: INSULIN DETEMIR
     Indication: TYPE 2 DIABETES MELLITUS
     Dosage: 62 IU, 1X/DAY
     Route: 058
  18. THERATEARS [Concomitant]
     Active Substance: CARBOXYMETHYLCELLULOSE SODIUM
     Dosage: UNK UNK, AS NEEDED (1 DROP INTO AFFECTED EYE AS NEEDED 3-6 TIMES DAILY)
     Route: 047
  19. LYRICA [Suspect]
     Active Substance: PREGABALIN
     Indication: NEUROPATHY PERIPHERAL
     Dosage: 75 MG, 2X/DAY
  20. HYDROCODONE [Concomitant]
     Active Substance: HYDROCODONE
     Indication: PAIN
     Dosage: 7.5/325, 2X/DAY
     Route: 048
     Dates: start: 201605
  21. LOSARTAN POTASSIUM. [Concomitant]
     Active Substance: LOSARTAN POTASSIUM
     Dosage: 25 MG, 1X/DAY (1/2 TABLET)
     Route: 048
  22. IRON [Concomitant]
     Active Substance: IRON
     Dosage: 325 MG, 1X/DAY (65 FE)
     Route: 048
  23. ASPIRIN. [Concomitant]
     Active Substance: ASPIRIN
     Dosage: 81 MG, 1X/DAY
     Route: 048
  24. VOLTAREN [Concomitant]
     Active Substance: DICLOFENAC SODIUM
     Indication: PSORIATIC ARTHROPATHY
     Dosage: UNK (AS DIRECTED)
     Route: 062
  25. LEVEMIR [Concomitant]
     Active Substance: INSULIN DETEMIR
     Indication: DIABETIC NEUROPATHY

REACTIONS (4)
  - Oral pain [Not Recovered/Not Resolved]
  - Intentional product use issue [Unknown]
  - Pain [Not Recovered/Not Resolved]
  - Nasopharyngitis [Not Recovered/Not Resolved]

NARRATIVE: CASE EVENT DATE: 201610
